FAERS Safety Report 17749662 (Version 1)
Quarter: 2020Q2

REPORT INFORMATION
  Report Type: Report from Study
  Country: PH (occurrence: PH)
  Receive Date: 20200506
  Receipt Date: 20200506
  Transmission Date: 20200714
  Serious: Yes (Death, Hospitalization, Other)
  Sender: FDA-Public Use
  Company Number: PH-TEVA-2020-PH-1233488

PATIENT
  Age: 28 Year
  Sex: Female

DRUGS (1)
  1. RIBOMUSTIN [Suspect]
     Active Substance: BENDAMUSTINE HYDROCHLORIDE
     Indication: NON-HODGKIN^S LYMPHOMA
     Route: 042

REACTIONS (5)
  - Pneumonia [Fatal]
  - Blood count abnormal [Unknown]
  - Diarrhoea [Unknown]
  - Prescribed underdose [Unknown]
  - Septic shock [Fatal]

NARRATIVE: CASE EVENT DATE: 20190823
